FAERS Safety Report 7357284-X (Version None)
Quarter: 2011Q1

REPORT INFORMATION
  Report Type: 
  Country: None (occurrence: None)
  Receive Date: 20110317
  Receipt Date: 20110311
  Transmission Date: 20110831
  Serious: No
  Sender: FDA-Public Use
  Company Number: US-PFIZER INC-2011054710

PATIENT
  Sex: Male

DRUGS (6)
  1. EFFEXOR XR [Suspect]
     Dosage: 75 MG, UNK
     Route: 048
  2. NIACIN [Interacting]
     Indication: VITAMIN SUPPLEMENTATION
     Dosage: UNK
  3. LIPITOR [Interacting]
     Indication: BLOOD CHOLESTEROL ABNORMAL
     Dosage: UNK
     Route: 048
  4. FISH OIL [Interacting]
     Dosage: UNK
  5. VITAMIN D [Interacting]
     Indication: VITAMIN D DEFICIENCY
     Dosage: UNK
     Route: 048
  6. VITAMIN D [Interacting]
     Dosage: 10000 IU, UNK

REACTIONS (6)
  - DRUG EFFECT DECREASED [None]
  - DRUG WITHDRAWAL SYNDROME [None]
  - HYPOAESTHESIA [None]
  - DRUG INTERACTION [None]
  - INSOMNIA [None]
  - VITAMIN D DEFICIENCY [None]
